FAERS Safety Report 12277434 (Version 1)
Quarter: 2016Q2

REPORT INFORMATION
  Report Type: Spontaneous
  Country: CA (occurrence: CA)
  Receive Date: 20160418
  Receipt Date: 20160418
  Transmission Date: 20160815
  Serious: Yes (Hospitalization)
  Sender: FDA-Public Use
  Company Number: CA-SEBELA IRELAND LIMITED-2016SEB00268

PATIENT
  Age: 39 Year
  Sex: Female

DRUGS (2)
  1. HYDROCORTISONE. [Suspect]
     Active Substance: HYDROCORTISONE
     Indication: OPTIC NEURITIS
     Dosage: 150 MG, 1X/DAY
     Route: 042
  2. PREDNISONE. [Suspect]
     Active Substance: PREDNISONE
     Indication: OPTIC NEURITIS
     Dosage: 60 MG, 1X/DAY
     Route: 048

REACTIONS (1)
  - Coronary artery dissection [Unknown]
